FAERS Safety Report 9451434 (Version 1)
Quarter: 2013Q3

REPORT INFORMATION
  Report Type: Spontaneous
  Country: JP (occurrence: JP)
  Receive Date: 20130809
  Receipt Date: 20130809
  Transmission Date: 20140515
  Serious: Yes (Hospitalization, Other)
  Sender: FDA-Public Use
  Company Number: JP-ROCHE-1257464

PATIENT
  Age: 69 Year
  Sex: Female
  Weight: 36 kg

DRUGS (15)
  1. AVASTIN [Suspect]
     Indication: RECTAL CANCER METASTATIC
     Route: 041
     Dates: end: 20130717
  2. CAMPTO [Suspect]
     Indication: RECTAL CANCER METASTATIC
     Dosage: AMOUNT 7CC OF INFUSION PUMP
     Route: 041
     Dates: start: 20130717, end: 20130717
  3. SODIUM CHLORIDE [Suspect]
     Indication: PRODUCT USED FOR UNKNOWN INDICATION
     Route: 041
  4. GLUCOSE [Suspect]
     Indication: PRODUCT USED FOR UNKNOWN INDICATION
     Route: 041
  5. OXALIPLATIN [Suspect]
     Indication: RECTAL CANCER METASTATIC
     Route: 065
  6. ISOVORIN [Concomitant]
     Indication: RECTAL CANCER METASTATIC
     Dosage: DOSAGE IS UNCERTAIN.
     Route: 041
     Dates: end: 20130717
  7. 5-FU [Concomitant]
     Indication: RECTAL CANCER METASTATIC
     Dosage: DOSAGE IS UNCERTAIN.
     Route: 041
  8. 5-FU [Concomitant]
     Indication: RECTAL CANCER METASTATIC
     Dosage: DOSAGE IS UNCERTAIN.
     Route: 040
  9. DECADRON [Concomitant]
     Dosage: DOSAGE IS UNCERTAIN.
     Route: 041
  10. ALOXI [Concomitant]
     Dosage: DOSAGE IS UNCERTAIN.
     Route: 041
  11. DEPAS [Concomitant]
     Dosage: DOSAGE IS UNCERTAIN.
     Route: 048
  12. LOXONIN [Concomitant]
     Dosage: DOSAGE IS UNCERTAIN.
     Route: 065
  13. GASTER (JAPAN) [Concomitant]
     Dosage: DOSAGE IS UNCERTAIN.
     Route: 065
  14. EDIROL [Concomitant]
     Dosage: DOSAGE IS UNCERTAIN.
     Route: 048
  15. LYRICA [Concomitant]
     Dosage: DOSAGE IS UNCERTAIN.
     Route: 065

REACTIONS (5)
  - Cough [Recovering/Resolving]
  - Oxygen saturation decreased [Recovering/Resolving]
  - Anaphylactic reaction [Unknown]
  - Flushing [Recovered/Resolved]
  - Tachycardia [Recovered/Resolved]
